FAERS Safety Report 4862374-7 (Version None)
Quarter: 2005Q4

REPORT INFORMATION
  Report Type: 
  Country: None (occurrence: None)
  Receive Date: 20051221
  Receipt Date: 20051111
  Transmission Date: 20060501
  Serious: Yes (Death, Hospitalization)
  Sender: FDA-Public Use
  Company Number: FR-RB-2318-2005

PATIENT
  Age: 38 Year
  Sex: Male

DRUGS (2)
  1. BUPRENORPHINE HCL [Suspect]
     Indication: DRUG USE FOR UNKNOWN INDICATION
     Route: 042
     Dates: start: 20050615, end: 20050919
  2. FLUOXETINE HYDROCHLORIDE [Suspect]
     Indication: DRUG USE FOR UNKNOWN INDICATION
     Dosage: DOSAGE UNKNOWN
     Route: 048
     Dates: start: 20050615, end: 20050919

REACTIONS (19)
  - ANAEMIA [None]
  - ANOREXIA [None]
  - BLOOD IMMUNOGLOBULIN G INCREASED [None]
  - BONE MARROW FAILURE [None]
  - COAGULOPATHY [None]
  - ENDOCARDITIS [None]
  - ENDOCARDITIS STAPHYLOCOCCAL [None]
  - HYPONATRAEMIA [None]
  - INTENTIONAL DRUG MISUSE [None]
  - MELAENA [None]
  - OEDEMA PERIPHERAL [None]
  - PANCYTOPENIA [None]
  - PULMONARY EMBOLISM [None]
  - PURPURA [None]
  - RENAL FAILURE [None]
  - RESPIRATORY DEPRESSION [None]
  - SEPSIS [None]
  - THROMBOCYTOPENIA [None]
  - VEIN DISORDER [None]
